FAERS Safety Report 4832103-1 (Version None)
Quarter: 2005Q4

REPORT INFORMATION
  Report Type: 
  Country: None (occurrence: None)
  Receive Date: 20051116
  Receipt Date: 20051107
  Transmission Date: 20060501
  Serious: Yes (Other)
  Sender: FDA-Public Use
  Company Number: 2005110007

PATIENT
  Age: 15 Year
  Sex: Female

DRUGS (1)
  1. TALOXA ORAL SUSPENSION (FELBAMATE) [Suspect]
     Indication: EPILEPSY

REACTIONS (1)
  - CONVULSION [None]
